FAERS Safety Report 4837656-5 (Version None)
Quarter: 2005Q4

REPORT INFORMATION
  Report Type: 
  Country: None (occurrence: None)
  Receive Date: 20051128
  Receipt Date: 20051004
  Transmission Date: 20060501
  Serious: Yes (Hospitalization)
  Sender: FDA-Public Use
  Company Number: US-MERCK-0510USA02219

PATIENT
  Age: 75 Year
  Sex: Female
  Weight: 61 kg

DRUGS (19)
  1. VIOXX [Suspect]
     Indication: MUSCLE STRAIN
     Route: 048
     Dates: start: 20021107, end: 20021108
  2. AMITRIPTYLINE HYDROCHLORIDE [Concomitant]
     Route: 048
  3. PREMARIN [Concomitant]
     Route: 065
  4. KLOR-CON [Concomitant]
     Route: 065
  5. SKELAXIN [Concomitant]
     Route: 048
  6. ULTRACET [Concomitant]
     Route: 048
  7. MAXZIDE [Concomitant]
     Route: 048
  8. ULTRAM [Concomitant]
     Route: 065
  9. ZOLOFT [Concomitant]
     Route: 048
  10. ZYRTEC [Concomitant]
     Route: 065
  11. SOLARAY BILBERRY AND LUTEIN [Concomitant]
     Route: 048
  12. CALCIUM (UNSPECIFIED) [Concomitant]
     Route: 048
  13. CENTRUM SILVER [Concomitant]
     Route: 048
  14. FERGON [Concomitant]
     Route: 048
  15. MULTIVITAMIN [Concomitant]
     Route: 048
  16. SUPER B COMPLEX [Concomitant]
     Route: 048
  17. ASCORBIC ACID [Concomitant]
     Route: 048
  18. VITAMIN E [Concomitant]
     Route: 048
  19. ZINC (UNSPECIFIED) [Concomitant]
     Route: 048

REACTIONS (3)
  - ABDOMINAL PAIN [None]
  - ACUTE MYOCARDIAL INFARCTION [None]
  - HYPERKALAEMIA [None]
